FAERS Safety Report 20197389 (Version 3)
Quarter: 2023Q2

REPORT INFORMATION
  Report Type: Spontaneous
  Country: US (occurrence: US)
  Receive Date: 20211217
  Receipt Date: 20230525
  Transmission Date: 20230721
  Serious: Yes (Other)
  Sender: FDA-Public Use
  Company Number: US-JNJFOC-20211220438

PATIENT
  Age: 6 Decade
  Sex: Female

DRUGS (16)
  1. ELMIRON [Suspect]
     Active Substance: PENTOSAN POLYSULFATE SODIUM
     Indication: Cystitis interstitial
     Dosage: 300 MG PER DAY
     Route: 048
     Dates: start: 20141030
  2. ELMIRON [Suspect]
     Active Substance: PENTOSAN POLYSULFATE SODIUM
     Dosage: 600 MG
     Route: 048
  3. ELMIRON [Suspect]
     Active Substance: PENTOSAN POLYSULFATE SODIUM
     Dosage: 400 MG
     Route: 048
  4. ELMIRON [Suspect]
     Active Substance: PENTOSAN POLYSULFATE SODIUM
     Route: 048
     Dates: end: 2020
  5. HYDROXYZINE HYDROCHLORIDE [Suspect]
     Active Substance: HYDROXYZINE HYDROCHLORIDE
     Indication: Product used for unknown indication
     Route: 048
     Dates: start: 20150112
  6. HYDROXYZINE HYDROCHLORIDE [Suspect]
     Active Substance: HYDROXYZINE HYDROCHLORIDE
     Route: 048
  7. HYDROXYZINE HYDROCHLORIDE [Suspect]
     Active Substance: HYDROXYZINE HYDROCHLORIDE
     Route: 048
     Dates: end: 20200331
  8. BUDESONIDE [Concomitant]
     Active Substance: BUDESONIDE
     Dates: start: 20140620, end: 20191117
  9. ASPIRIN [Concomitant]
     Active Substance: ASPIRIN
     Dates: start: 20140620, end: 20200611
  10. NORCO [Concomitant]
     Active Substance: ACETAMINOPHEN\HYDROCODONE BITARTRATE
     Dates: start: 20140411, end: 20190807
  11. OXYCODONE [Concomitant]
     Active Substance: OXYCODONE
     Dates: start: 20141110, end: 20181221
  12. AMITRIPTYLINE [Concomitant]
     Active Substance: AMITRIPTYLINE
     Dates: start: 20141215, end: 20171214
  13. TRAMADOL [Concomitant]
     Active Substance: TRAMADOL
     Dates: start: 20150402, end: 20190807
  14. TIZANIDINE [Concomitant]
     Active Substance: TIZANIDINE
     Dates: start: 20150402, end: 20160419
  15. GABAPENTIN [Concomitant]
     Active Substance: GABAPENTIN
     Dates: start: 20150730, end: 20200611
  16. CODEINE [Concomitant]
     Active Substance: CODEINE
     Dates: start: 20141125, end: 20170721

REACTIONS (5)
  - Pigmentary maculopathy [Unknown]
  - Somnolence [Unknown]
  - Feeling abnormal [Unknown]
  - Swelling [Unknown]
  - Off label use [Unknown]

NARRATIVE: CASE EVENT DATE: 20150101
